FAERS Safety Report 5300728-5 (Version None)
Quarter: 2007Q1

REPORT INFORMATION
  Report Type: 
  Country: None (occurrence: None)
  Receive Date: 20070201
  Receipt Date: 20061012
  Transmission Date: 20070707
  Serious: No
  Sender: FDA-Public Use
  Company Number: 2006PV022986

PATIENT
  Age: 59 Year
  Sex: Female
  Weight: 78.0187 kg

DRUGS (5)
  1. BYETTA [Suspect]
     Indication: DIABETES MELLITUS NON-INSULIN-DEPENDENT
     Dosage: 10 MCG; 5 MCG; BID; SC
     Route: 058
     Dates: start: 20060601, end: 20060901
  2. BYETTA [Suspect]
     Indication: DIABETES MELLITUS NON-INSULIN-DEPENDENT
     Dosage: 10 MCG; 5 MCG; BID; SC
     Route: 058
     Dates: start: 20060901
  3. ACTOPLUS MET [Concomitant]
     Dates: start: 20060601, end: 20060901
  4. GLUCOPHAGE [Suspect]
     Dosage: 1000 MG; BID
     Dates: start: 19980101, end: 20060601
  5. ACTOS [Concomitant]

REACTIONS (3)
  - INJECTION SITE BRUISING [None]
  - INJECTION SITE HAEMORRHAGE [None]
  - RENAL IMPAIRMENT [None]
